FAERS Safety Report 4364791-0 (Version None)
Quarter: 2004Q2

REPORT INFORMATION
  Report Type: 
  Country: None (occurrence: None)
  Receive Date: 20040526
  Receipt Date: 20030408
  Transmission Date: 20050107
  Serious: No
  Sender: FDA-Public Use
  Company Number: US-GLAXOSMITHKLINE-A0405199A

PATIENT
  Age: 62 Year
  Sex: Female

DRUGS (9)
  1. LOTRONEX [Suspect]
     Dosage: 1TAB TWICE PER DAY
     Route: 048
     Dates: start: 20000519, end: 20010101
  2. ALPRAZOLAM [Concomitant]
  3. VIOXX [Concomitant]
  4. ALLEGRA [Concomitant]
  5. LEVBID [Concomitant]
  6. XANAX [Concomitant]
  7. NASONEX [Concomitant]
  8. LASIX [Concomitant]
  9. ASPIRIN [Concomitant]

REACTIONS (2)
  - CONSTIPATION [None]
  - DRUG INEFFECTIVE [None]
